FAERS Safety Report 8224084 (Version 2)
Quarter: 2012Q4

REPORT INFORMATION
  Report Type: 
  Country: US (occurrence: US)
  Receive Date: 20111102
  Receipt Date: 20121107
  Transmission Date: 20130627
  Serious: Yes (Other)
  Sender: FDA-Public Use
  Company Number: US-AMGEN-USASP2011036281

PATIENT
  Age: 86 Year
  Sex: Female

DRUGS (3)
  1. ENBREL [Suspect]
     Indication: PSORIASIS
     Dosage: 50 mg, qwk
     Route: 058
     Dates: start: 20061226
  2. ENBREL [Suspect]
     Dosage: 50 mg, qwk
     Dates: start: 20041001
  3. COUMADIN                           /00014802/ [Concomitant]
     Dosage: UNK

REACTIONS (4)
  - Vaginal abscess [Not Recovered/Not Resolved]
  - Lymphadenopathy [Not Recovered/Not Resolved]
  - Vulvovaginal dryness [Recovered/Resolved]
  - Diverticulitis [Recovered/Resolved]
